FAERS Safety Report 8800074 (Version 2)
Quarter: 2015Q2

REPORT INFORMATION
  Report Type: Report from Study
  Country: US (occurrence: US)
  Receive Date: 20120921
  Receipt Date: 20150622
  Transmission Date: 20150821
  Serious: Yes (Death)
  Sender: FDA-Public Use
  Company Number: US-ROCHE-1104544

PATIENT
  Sex: Male
  Weight: 82 kg

DRUGS (8)
  1. AVASTIN [Suspect]
     Active Substance: BEVACIZUMAB
     Indication: RENAL CANCER
     Route: 042
     Dates: start: 20041229
  2. AVASTIN [Suspect]
     Active Substance: BEVACIZUMAB
     Indication: LUNG NEOPLASM MALIGNANT
  3. INTERLEUKIN-2 [Concomitant]
     Active Substance: ALDESLEUKIN
     Route: 058
  4. BENADRYL [Concomitant]
     Active Substance: DIPHENHYDRAMINE HYDROCHLORIDE
     Route: 065
  5. ZOMETA [Concomitant]
     Active Substance: ZOLEDRONIC ACID
     Route: 065
  6. DECADRON [Concomitant]
     Active Substance: DEXAMETHASONE
     Route: 065
  7. BENADRYL [Concomitant]
     Active Substance: DIPHENHYDRAMINE HYDROCHLORIDE
     Route: 065
  8. TYLENOL #1 (UNITED STATES) [Concomitant]
     Route: 048

REACTIONS (2)
  - Off label use [Unknown]
  - Death [Fatal]
